FAERS Safety Report 8504018-9 (Version None)
Quarter: 2012Q3

REPORT INFORMATION
  Report Type: 
  Country: None (occurrence: None)
  Receive Date: 20120711
  Receipt Date: 20120704
  Transmission Date: 20120928
  Serious: Yes (Other)
  Sender: FDA-Public Use
  Company Number: PHHY2012BR048561

PATIENT
  Sex: Female

DRUGS (10)
  1. HYDREA [Concomitant]
     Indication: BLOOD DISORDER
     Dosage: 2 TABLETS DAILY
  2. ALLOPURINOL [Concomitant]
     Indication: BLOOD URIC ACID
     Dosage: 1 TABLETS DAILY
  3. DIOVAN HCT [Suspect]
     Dosage: 1 DF, QD
     Route: 048
  4. METFORMIN HCL [Concomitant]
     Indication: DIABETES MELLITUS
     Dosage: 1 TABLET DAILY
     Route: 048
  5. SPIRIVA [Concomitant]
  6. ONBREZ [Suspect]
     Indication: LUNG DISORDER
     Dosage: 1 DF, QD
  7. CALCIUM [Concomitant]
     Indication: VITAMIN SUPPLEMENTATION
     Dosage: 2 TABLETS DAILY
  8. BAMIFIX [Concomitant]
     Indication: RESPIRATORY DISORDER
     Dosage: 1 TABLETS DAILY
  9. DIOVAN [Suspect]
     Dosage: 80 MG, UNK
  10. SIMVASTATIN [Concomitant]
     Dosage: 1 TABLETS DAILY
     Route: 048

REACTIONS (1)
  - LOWER LIMB FRACTURE [None]
